FAERS Safety Report 6967844-3 (Version None)
Quarter: 2010Q3

REPORT INFORMATION
  Report Type: 
  Country: None (occurrence: None)
  Receive Date: 20100907
  Receipt Date: 20100308
  Transmission Date: 20110219
  Serious: No
  Sender: FDA-Public Use
  Company Number: A0845215A

PATIENT
  Age: 72 Year
  Sex: Female

DRUGS (8)
  1. REQUIP [Suspect]
     Indication: RESTLESS LEGS SYNDROME
     Dosage: 8MG PER DAY
     Route: 048
     Dates: start: 20040101, end: 20090101
  2. ANTIDEPRESSANT [Concomitant]
  3. DIOVAN [Concomitant]
  4. LASIX [Concomitant]
  5. TRAZODONE HCL [Concomitant]
  6. XANAX [Concomitant]
  7. PRILOSEC [Concomitant]
  8. THYROID MEDICATION [Concomitant]

REACTIONS (2)
  - DRUG INEFFECTIVE [None]
  - WEIGHT DECREASED [None]
